FAERS Safety Report 12978002 (Version 6)
Quarter: 2018Q3

REPORT INFORMATION
  Report Type: Report from Study
  Country: JP (occurrence: JP)
  Receive Date: 20161128
  Receipt Date: 20180920
  Transmission Date: 20181010
  Serious: Yes (Other)
  Sender: FDA-Public Use
  Company Number: JP-ASTELLAS-2010JP006859

PATIENT
  Age: 26 Year
  Sex: Female
  Weight: 52 kg

DRUGS (77)
  1. PREDONINE [Suspect]
     Active Substance: PREDNISOLONE
     Route: 048
     Dates: start: 20100108, end: 20100422
  2. BREDININ [Suspect]
     Active Substance: MIZORIBINE
     Indication: LUPUS NEPHRITIS
     Route: 048
     Dates: start: 20091016, end: 20100107
  3. IMURAN [Suspect]
     Active Substance: AZATHIOPRINE
     Indication: LUPUS NEPHRITIS
     Route: 048
     Dates: start: 20120911, end: 20121120
  4. CELLCEPT [Suspect]
     Active Substance: MYCOPHENOLATE MOFETIL\MYCOPHENOLATE MOFETIL HYDROCHLORIDE
     Indication: LUPUS NEPHRITIS
     Route: 048
     Dates: start: 20170530, end: 20170627
  5. PERSANTINE [Concomitant]
     Active Substance: DIPYRIDAMOLE
     Indication: LUPUS NEPHRITIS
     Route: 048
     Dates: end: 20100218
  6. HYPEN                              /00340101/ [Concomitant]
     Active Substance: INDAPAMIDE
     Indication: EPICONDYLITIS
     Route: 048
     Dates: start: 20110207, end: 20110214
  7. PL [Concomitant]
     Active Substance: ACETAMINOPHEN\CAFFEINE\PROMETHAZINE\SALICYLAMIDE
     Indication: UPPER RESPIRATORY TRACT INFLAMMATION
     Route: 048
     Dates: start: 20111208, end: 20111215
  8. PLAQUENIL [Concomitant]
     Active Substance: HYDROXYCHLOROQUINE SULFATE
     Route: 048
     Dates: start: 20170719
  9. POSTERISAN FORTE                   /01567801/ [Concomitant]
     Indication: HAEMORRHOIDS
     Route: 061
     Dates: start: 20160125, end: 20160129
  10. ACTONEL [Concomitant]
     Active Substance: RISEDRONATE SODIUM
     Indication: PROPHYLAXIS
     Route: 048
     Dates: start: 20170418
  11. BUSCOPAN [Concomitant]
     Active Substance: BUTYLSCOPOLAMINE BROMIDE
     Indication: DIARRHOEA
     Route: 048
     Dates: start: 20160624, end: 20170717
  12. BREDININ [Suspect]
     Active Substance: MIZORIBINE
     Route: 048
     Dates: start: 20101119, end: 20120910
  13. INTEBAN [Concomitant]
     Active Substance: INDOMETHACIN
     Indication: EPICONDYLITIS
     Dosage: UNK UNK, UNKNOWN FREQ.
     Route: 061
     Dates: start: 20110207, end: 20110214
  14. CALONAL [Concomitant]
     Active Substance: ACETAMINOPHEN
     Indication: ENTEROCOLITIS
     Route: 048
     Dates: start: 20110221, end: 20110222
  15. CALONAL [Concomitant]
     Active Substance: ACETAMINOPHEN
     Indication: BACK PAIN
     Route: 048
     Dates: start: 20151211, end: 20160122
  16. LUTEONIN [Concomitant]
     Indication: THREATENED LABOUR
     Route: 048
     Dates: start: 20151107, end: 20151111
  17. PRIMPERAN [Concomitant]
     Active Substance: METOCLOPRAMIDE HYDROCHLORIDE
     Indication: DIZZINESS
     Route: 048
     Dates: start: 20170704, end: 20170714
  18. PREDONINE [Suspect]
     Active Substance: PREDNISOLONE
     Route: 048
     Dates: start: 20091106, end: 20100107
  19. PREDONINE [Suspect]
     Active Substance: PREDNISOLONE
     Route: 048
     Dates: start: 20130213, end: 20170418
  20. IMURAN [Suspect]
     Active Substance: AZATHIOPRINE
     Indication: SYSTEMIC LUPUS ERYTHEMATOSUS
     Route: 048
     Dates: start: 20121121, end: 20121218
  21. KLARICID                           /00984601/ [Interacting]
     Active Substance: CLARITHROMYCIN
     Indication: ACUTE SINUSITIS
     Route: 048
     Dates: start: 20120815, end: 20120822
  22. MUCOSTA [Concomitant]
     Active Substance: REBAMIPIDE
     Indication: EPICONDYLITIS
     Route: 048
     Dates: start: 20110207, end: 20110214
  23. EDIROL [Concomitant]
     Active Substance: ELDECALCITOL
     Dosage: 0.75 ?G, ONCE DAILY
     Route: 048
     Dates: start: 20160426
  24. HERBAL NOS [Concomitant]
     Active Substance: HERBALS
     Indication: FUNCTIONAL GASTROINTESTINAL DISORDER
     Route: 048
     Dates: start: 20111114, end: 20111220
  25. PLAQUENIL [Concomitant]
     Active Substance: HYDROXYCHLOROQUINE SULFATE
     Route: 048
     Dates: start: 20160916, end: 20170718
  26. AZANIN [Concomitant]
     Active Substance: AZATHIOPRINE
     Indication: SYSTEMIC LUPUS ERYTHEMATOSUS
     Route: 048
     Dates: start: 20161125, end: 20170613
  27. PREDONINE [Suspect]
     Active Substance: PREDNISOLONE
     Route: 048
     Dates: start: 20080515, end: 20081008
  28. PREDONINE [Suspect]
     Active Substance: PREDNISOLONE
     Route: 048
     Dates: start: 20090115, end: 20091105
  29. PREDONINE [Suspect]
     Active Substance: PREDNISOLONE
     Route: 048
     Dates: start: 20101008, end: 20130212
  30. BREDININ [Suspect]
     Active Substance: MIZORIBINE
     Route: 048
     Dates: start: 20100903, end: 20101118
  31. BAKTAR [Suspect]
     Active Substance: SULFAMETHOXAZOLE\TRIMETHOPRIM
     Indication: PROPHYLAXIS
     Route: 048
     Dates: end: 20150705
  32. ALFAROL [Concomitant]
     Active Substance: ALFACALCIDOL
     Indication: PRODUCT USED FOR UNKNOWN INDICATION
     Route: 048
     Dates: end: 20120426
  33. TAKEPRON [Concomitant]
     Active Substance: LANSOPRAZOLE
     Indication: PROPHYLAXIS
     Route: 048
     Dates: end: 20150705
  34. BIOFERMIN                          /01617201/ [Concomitant]
     Active Substance: BACILLUS SUBTILIS\LACTOBACILLUS ACIDOPHILUS\STREPTOCOCCUS FAECAIS
     Indication: ENTEROCOLITIS
     Route: 048
     Dates: start: 20110221, end: 20110228
  35. OKINAZOLE [Concomitant]
     Indication: VAGINAL INFECTION
     Route: 067
     Dates: start: 20100616, end: 20100616
  36. AMETHYST [Concomitant]
     Active Substance: ETHINYL ESTRADIOL\LEVONORGESTREL
     Indication: ACUTE SINUSITIS
     Route: 048
     Dates: start: 20120815, end: 20120822
  37. PLAQUENIL [Concomitant]
     Active Substance: HYDROXYCHLOROQUINE SULFATE
     Indication: LUPUS NEPHRITIS
     Route: 048
     Dates: start: 20160916, end: 20170718
  38. LUTEONIN [Concomitant]
     Route: 048
     Dates: start: 20151208, end: 20160122
  39. DICLOFENAC [Concomitant]
     Active Substance: DICLOFENAC
     Indication: PERINEAL PAIN
     Route: 048
     Dates: start: 20160125, end: 20160125
  40. GASLON [Concomitant]
     Active Substance: IRSOGLADINE MALEATE
     Indication: DIARRHOEA
     Route: 048
     Dates: start: 20170624, end: 20170913
  41. ADETPHOS [Concomitant]
     Active Substance: ADENOSINE TRIPHOSPHATE
     Indication: DIZZINESS
     Route: 048
     Dates: start: 20170715, end: 20170718
  42. TACROLIMUS. [Suspect]
     Active Substance: TACROLIMUS
     Indication: LUPUS NEPHRITIS
     Route: 048
     Dates: start: 20071009
  43. PREDONINE [Suspect]
     Active Substance: PREDNISOLONE
     Route: 048
     Dates: start: 20081009, end: 20090114
  44. PREDONINE [Suspect]
     Active Substance: PREDNISOLONE
     Route: 048
     Dates: start: 20100623, end: 20101007
  45. CELLCEPT [Suspect]
     Active Substance: MYCOPHENOLATE MOFETIL\MYCOPHENOLATE MOFETIL HYDROCHLORIDE
     Route: 048
     Dates: start: 20170628, end: 20170718
  46. ZANTAC [Concomitant]
     Active Substance: RANITIDINE HYDROCHLORIDE
     Indication: PROPHYLAXIS
     Route: 048
  47. COSPANON [Concomitant]
     Active Substance: FLOPROPIONE
     Indication: FUNCTIONAL GASTROINTESTINAL DISORDER
     Route: 048
     Dates: start: 20111106, end: 20111114
  48. CIPROXAN                           /00697202/ [Concomitant]
     Active Substance: CIPROFLOXACIN
     Indication: ENTEROCOLITIS
     Route: 048
     Dates: start: 20110221, end: 20110225
  49. ERYTHROCIN                         /00020901/ [Concomitant]
     Active Substance: ERYTHROMYCIN ETHYLSUCCINATE
     Indication: DRUG LEVEL INCREASED
     Route: 048
     Dates: end: 20150528
  50. MAGMITT [Concomitant]
     Active Substance: MAGNESIUM OXIDE
     Indication: CONSTIPATION
     Route: 048
     Dates: start: 20150712
  51. SAWACILLIN [Concomitant]
     Active Substance: AMOXICILLIN
     Indication: PROPHYLAXIS
     Route: 048
     Dates: start: 20160125, end: 20160129
  52. FERROUS SODIUM CITRATE [Concomitant]
     Active Substance: SODIUM FERROUS CITRATE
     Indication: IRON DEFICIENCY ANAEMIA
     Route: 048
     Dates: start: 20160126, end: 20160202
  53. BREDININ [Suspect]
     Active Substance: MIZORIBINE
     Route: 048
     Dates: start: 20100623, end: 20100902
  54. KLARICID                           /00984601/ [Interacting]
     Active Substance: CLARITHROMYCIN
     Indication: DRUG LEVEL INCREASED
     Dosage: UNK UNK, UNKNOWN FREQ.
     Route: 048
     Dates: start: 20140509, end: 20140522
  55. SELBEX [Concomitant]
     Active Substance: TEPRENONE
     Indication: PROPHYLAXIS
     Route: 048
  56. GLAKAY [Concomitant]
     Active Substance: MENATETRENONE
     Indication: PROPHYLAXIS
     Route: 048
     Dates: end: 20150705
  57. GLAKAY [Concomitant]
     Active Substance: MENATETRENONE
     Route: 048
     Dates: start: 20160426, end: 20170417
  58. EDIROL [Concomitant]
     Active Substance: ELDECALCITOL
     Indication: PRODUCT USED FOR UNKNOWN INDICATION
     Dosage: 0.75 ?G, ONCE DAILY
     Route: 048
     Dates: start: 20120427, end: 20150705
  59. ERYTHROCIN                         /00020901/ [Concomitant]
     Active Substance: ERYTHROMYCIN ETHYLSUCCINATE
     Route: 048
     Dates: start: 20150529, end: 20151006
  60. AZANIN [Concomitant]
     Active Substance: AZATHIOPRINE
     Indication: LUPUS NEPHRITIS
     Route: 048
     Dates: start: 20160930, end: 20161124
  61. MERISLON [Concomitant]
     Active Substance: BETAHISTINE MESILATE
     Indication: DIZZINESS
     Route: 048
     Dates: start: 20170704, end: 20170714
  62. PREDONINE [Suspect]
     Active Substance: PREDNISOLONE
     Route: 048
     Dates: start: 20170419
  63. BREDININ [Suspect]
     Active Substance: MIZORIBINE
     Route: 048
     Dates: start: 20100108, end: 20100622
  64. BAKTAR [Suspect]
     Active Substance: SULFAMETHOXAZOLE\TRIMETHOPRIM
     Dosage: UNK UNK, UNKNOWN FREQ.
     Route: 048
     Dates: start: 20160426
  65. NEXIUM [Concomitant]
     Active Substance: ESOMEPRAZOLE MAGNESIUM
     Indication: FUNCTIONAL GASTROINTESTINAL DISORDER
     Route: 048
     Dates: start: 20111106, end: 20111220
  66. GASMOTIN [Concomitant]
     Active Substance: MOSAPRIDE CITRATE
     Indication: FUNCTIONAL GASTROINTESTINAL DISORDER
     Route: 048
     Dates: start: 20111114, end: 20111220
  67. GASCON [Concomitant]
     Active Substance: DIMETHICONE
     Indication: FUNCTIONAL GASTROINTESTINAL DISORDER
     Route: 048
     Dates: start: 20111114, end: 20111220
  68. LOXONIN [Concomitant]
     Active Substance: LOXOPROFEN SODIUM
     Indication: ENTEROCOLITIS
     Route: 048
     Dates: start: 20110221, end: 20110221
  69. ZITHROMAC [Concomitant]
     Active Substance: AZITHROMYCIN DIHYDRATE
     Indication: PROPHYLAXIS
     Route: 048
     Dates: start: 20160123, end: 20160123
  70. CEPHADOL [Concomitant]
     Active Substance: DIPHENIDOL HYDROCHLORIDE
     Indication: DIZZINESS
     Route: 048
     Dates: start: 20170704, end: 20170714
  71. PREDONINE [Suspect]
     Active Substance: PREDNISOLONE
     Indication: LUPUS NEPHRITIS
     Route: 048
     Dates: end: 20080514
  72. PREDONINE [Suspect]
     Active Substance: PREDNISOLONE
     Route: 048
     Dates: start: 20100423, end: 20100622
  73. IMURAN [Suspect]
     Active Substance: AZATHIOPRINE
     Route: 048
     Dates: start: 20121219, end: 20160929
  74. PURSENNID                          /00142207/ [Concomitant]
     Active Substance: SENNA LEAF
     Indication: CONSTIPATION
     Dosage: UNK UNK, UNKNOWN FREQ.
     Route: 048
     Dates: end: 20080802
  75. TAKEPRON [Concomitant]
     Active Substance: LANSOPRAZOLE
     Indication: FUNCTIONAL GASTROINTESTINAL DISORDER
     Route: 048
     Dates: start: 20111020, end: 20111105
  76. TAKEPRON [Concomitant]
     Active Substance: LANSOPRAZOLE
     Route: 048
     Dates: start: 20160426
  77. BIOFERMIN                          /01617201/ [Concomitant]
     Active Substance: BACILLUS SUBTILIS\LACTOBACILLUS ACIDOPHILUS\STREPTOCOCCUS FAECAIS
     Indication: DIARRHOEA
     Route: 048
     Dates: start: 20170613, end: 20170627

REACTIONS (21)
  - Enteritis infectious [Recovering/Resolving]
  - Upper respiratory tract infection [Recovered/Resolved]
  - Iron deficiency anaemia [Recovered/Resolved]
  - Maternal exposure during pregnancy [Unknown]
  - Constipation [Recovered/Resolved]
  - Vulvovaginal candidiasis [Recovered/Resolved]
  - Epicondylitis [Recovering/Resolving]
  - Drug interaction [Unknown]
  - Dizziness [Recovered/Resolved]
  - Enteritis infectious [Recovered/Resolved]
  - Haemorrhoids [Recovered/Resolved]
  - Diarrhoea [Recovered/Resolved]
  - Premature labour [Recovered/Resolved]
  - Hydronephrosis [Recovering/Resolving]
  - Perineal pain [Recovered/Resolved]
  - White blood cell count decreased [Recovered/Resolved]
  - Functional gastrointestinal disorder [Recovered/Resolved]
  - Back pain [Recovered/Resolved]
  - Premature delivery [Recovered/Resolved]
  - Acute sinusitis [Recovered/Resolved]
  - Systemic lupus erythematosus [Recovering/Resolving]

NARRATIVE: CASE EVENT DATE: 20100613
